FAERS Safety Report 4411805-5 (Version None)
Quarter: 2004Q3

REPORT INFORMATION
  Report Type: 
  Country: None (occurrence: None)
  Receive Date: 20040728
  Receipt Date: 20040713
  Transmission Date: 20050211
  Serious: Yes (Death, Hospitalization, Other)
  Sender: FDA-Public Use
  Company Number: 04-255-0768-1

PATIENT
  Age: 75 Year
  Sex: Female
  Weight: 56 kg

DRUGS (1)
  1. DAUNORUBICIN HCL [Suspect]
     Dosage: 45 MG/M2 IV DAYS 1,3

REACTIONS (2)
  - FEBRILE NEUTROPENIA [None]
  - INFECTION [None]
